FAERS Safety Report 25475499 (Version 1)
Quarter: 2025Q2

REPORT INFORMATION
  Report Type: Spontaneous
  Country: CA (occurrence: CA)
  Receive Date: 20250624
  Receipt Date: 20250624
  Transmission Date: 20250717
  Serious: Yes (Death, Life-Threatening, Hospitalization, Disabling, Congenital Anomaly, Other)
  Sender: ANI
  Company Number: CA-ANIPHARMA-2025-CA-002018

PATIENT
  Sex: Female
  Weight: 96 kg

DRUGS (84)
  1. CANDESARTAN CILEXETIL [Suspect]
     Active Substance: CANDESARTAN CILEXETIL
     Indication: Migraine
     Route: 048
  2. TRAMADOL HYDROCHLORIDE [Suspect]
     Active Substance: TRAMADOL HYDROCHLORIDE
  3. ACETAMINOPHEN [Suspect]
     Active Substance: ACETAMINOPHEN
  4. ACETAMINOPHEN\OXYCODONE HYDROCHLORIDE\OXYCODONE TEREPHTHALATE [Suspect]
     Active Substance: ACETAMINOPHEN\OXYCODONE HYDROCHLORIDE\OXYCODONE TEREPHTHALATE
  5. ACTEMRA [Suspect]
     Active Substance: TOCILIZUMAB
  6. ACTIFED (PSEUDOEPHEDRINE HYDROCHLORIDE\TRIPROLIDINE HYDROCHLORIDE) [Suspect]
     Active Substance: PSEUDOEPHEDRINE HYDROCHLORIDE\TRIPROLIDINE HYDROCHLORIDE
  7. ADALIMUMAB [Suspect]
     Active Substance: ADALIMUMAB
  8. AIMOVIG [Suspect]
     Active Substance: ERENUMAB-AOOE
  9. ALENDRONATE SODIUM [Suspect]
     Active Substance: ALENDRONATE SODIUM
  10. ALENDRONATE SODIUM\CHOLECALCIFEROL [Suspect]
     Active Substance: ALENDRONATE SODIUM\CHOLECALCIFEROL
  11. APREMILAST [Suspect]
     Active Substance: APREMILAST
  12. CALCIUM CARBONATE [Suspect]
     Active Substance: CALCIUM CARBONATE
  13. ARAVA [Suspect]
     Active Substance: LEFLUNOMIDE
  14. ATOMOXETINE HYDROCHLORIDE [Suspect]
     Active Substance: ATOMOXETINE HYDROCHLORIDE
  15. BERINERT [Suspect]
     Active Substance: HUMAN C1-ESTERASE INHIBITOR
  16. BETAMETHASONE [Suspect]
     Active Substance: BETAMETHASONE
  17. BOTULINUM TOXIN TYPE A [Suspect]
     Active Substance: BOTULINUM TOXIN TYPE A
  18. BUPRENORPHINE HYDROCHLORIDE [Suspect]
     Active Substance: BUPRENORPHINE HYDROCHLORIDE
  19. BUTRANS [Suspect]
     Active Substance: BUPRENORPHINE
  20. CELECOXIB [Suspect]
     Active Substance: CELECOXIB
  21. CERTOLIZUMAB PEGOL [Suspect]
     Active Substance: CERTOLIZUMAB PEGOL
  22. CETIRIZINE HYDROCHLORIDE [Suspect]
     Active Substance: CETIRIZINE HYDROCHLORIDE
  23. COSENTYX [Concomitant]
     Active Substance: SECUKINUMAB
  24. CHLORHEXIDINE GLUCONATE [Suspect]
     Active Substance: CHLORHEXIDINE GLUCONATE
  25. CIMZIA [Suspect]
     Active Substance: CERTOLIZUMAB PEGOL
  26. CORTISONE [Suspect]
     Active Substance: CORTISONE
  27. CORTISONE ACETATE [Suspect]
     Active Substance: CORTISONE ACETATE
  28. COSENTYX [Suspect]
     Active Substance: SECUKINUMAB
  29. CYCLOBENZAPRINE [Suspect]
     Active Substance: CYCLOBENZAPRINE
  30. DESOXIMETASONE [Suspect]
     Active Substance: DESOXIMETASONE
  31. DICLOFENAC DIETHYLAMINE [Suspect]
     Active Substance: DICLOFENAC DIETHYLAMINE
  32. DICLOFENAC POTASSIUM [Suspect]
     Active Substance: DICLOFENAC POTASSIUM
  33. DICLOFENAC SODIUM [Suspect]
     Active Substance: DICLOFENAC SODIUM
  34. METHOTREXATE [Suspect]
     Active Substance: METHOTREXATE
  35. DOMPERIDONE MALEATE [Suspect]
     Active Substance: DOMPERIDONE MALEATE
  36. ENBREL [Suspect]
     Active Substance: ETANERCEPT
  37. ERELZI [Suspect]
     Active Substance: ETANERCEPT-SZZS
  38. ERENUMAB [Suspect]
     Active Substance: ERENUMAB
  39. CALCIUM ASCORBATE [Suspect]
     Active Substance: CALCIUM ASCORBATE
  40. FINACEA [Suspect]
     Active Substance: AZELAIC ACID
  41. FOLIC ACID [Suspect]
     Active Substance: FOLIC ACID
  42. FOSAMAX [Suspect]
     Active Substance: ALENDRONATE SODIUM
  43. GOLIMUMAB [Suspect]
     Active Substance: GOLIMUMAB
  44. HUMIRA [Suspect]
     Active Substance: ADALIMUMAB
  45. PANTOPRAZOLE SODIUM [Suspect]
     Active Substance: PANTOPRAZOLE SODIUM
  46. HYDROMORPHONE [Suspect]
     Active Substance: HYDROMORPHONE
  47. HYDROXYCHLOROQUINE [Suspect]
     Active Substance: HYDROXYCHLOROQUINE
  48. INFLIXIMAB [Suspect]
     Active Substance: INFLIXIMAB
  49. KEVZARA [Suspect]
     Active Substance: SARILUMAB
  50. LAMICTAL [Suspect]
     Active Substance: LAMOTRIGINE
  51. LAMOTRIGINE [Suspect]
     Active Substance: LAMOTRIGINE
  52. LEFLUNOMIDE [Suspect]
     Active Substance: LEFLUNOMIDE
  53. LEVOMILNACIPRAN [Suspect]
     Active Substance: LEVOMILNACIPRAN
  54. CLIOQUINOL\FLUMETHASONE [Suspect]
     Active Substance: CLIOQUINOL\FLUMETHASONE
  55. MAGNESIUM CITRATE [Suspect]
     Active Substance: MAGNESIUM CITRATE
  56. PREDNISONE [Suspect]
     Active Substance: PREDNISONE
     Route: 048
  57. METHYLPREDNISOLONE SODIUM SUCCINATE [Suspect]
     Active Substance: METHYLPREDNISOLONE SODIUM SUCCINATE
  58. MYRBETRIQ [Suspect]
     Active Substance: MIRABEGRON
  59. NAPROSYN [Suspect]
     Active Substance: NAPROXEN
  60. NAPROXEN SODIUM [Suspect]
     Active Substance: NAPROXEN SODIUM
  61. NUCALA [Suspect]
     Active Substance: MEPOLIZUMAB
  62. ORENCIA [Suspect]
     Active Substance: ABATACEPT
  63. OXYCODONE [Suspect]
     Active Substance: OXYCODONE
  64. PHTHALYLSULFATHIAZOLE [Suspect]
     Active Substance: PHTHALYLSULFATHIAZOLE
  65. PREPARATION H NOS [Suspect]
     Active Substance: UNSPECIFIED INGREDIENT
  66. RANITIDINE HYDROCHLORIDE [Suspect]
     Active Substance: RANITIDINE HYDROCHLORIDE
  67. PREDNISONE [Suspect]
     Active Substance: PREDNISONE
  68. CETIRIZINE HYDROCHLORIDE [Suspect]
     Active Substance: CETIRIZINE HYDROCHLORIDE
  69. CETIRIZINE HYDROCHLORIDE\PSEUDOEPHEDRINE HYDROCHLORIDE [Suspect]
     Active Substance: CETIRIZINE HYDROCHLORIDE\PSEUDOEPHEDRINE HYDROCHLORIDE
  70. REMICADE [Suspect]
     Active Substance: INFLIXIMAB
  71. DIETARY SUPPLEMENT\HERBALS [Suspect]
     Active Substance: DIETARY SUPPLEMENT\HERBALS
  72. SIMPONI [Suspect]
     Active Substance: GOLIMUMAB
  73. GOLD SODIUM THIOMALATE [Suspect]
     Active Substance: GOLD SODIUM THIOMALATE
  74. STELARA [Suspect]
     Active Substance: USTEKINUMAB
  75. SULFASALAZINE [Suspect]
     Active Substance: SULFASALAZINE
  76. TIBOLONE [Suspect]
     Active Substance: TIBOLONE
  77. TOCILIZUMAB [Suspect]
     Active Substance: TOCILIZUMAB
  78. RAMIPRIL [Suspect]
     Active Substance: RAMIPRIL
  79. TOFACITINIB [Suspect]
     Active Substance: TOFACITINIB
  80. TOPIRAMATE [Suspect]
     Active Substance: TOPIRAMATE
  81. USTEKINUMAB [Suspect]
     Active Substance: USTEKINUMAB
  82. VITAMIN D3 [Suspect]
     Active Substance: CHOLECALCIFEROL
  83. XELJANZ [Suspect]
     Active Substance: TOFACITINIB CITRATE
  84. RITUXIMAB [Suspect]
     Active Substance: RITUXIMAB

REACTIONS (16)
  - Anti-cyclic citrullinated peptide antibody positive [Not Recovered/Not Resolved]
  - Anxiety [Not Recovered/Not Resolved]
  - Arthralgia [Not Recovered/Not Resolved]
  - Intentional product use issue [Not Recovered/Not Resolved]
  - Medication error [Not Recovered/Not Resolved]
  - Off label use [Not Recovered/Not Resolved]
  - Product quality issue [Not Recovered/Not Resolved]
  - Product use issue [Not Recovered/Not Resolved]
  - Abdominal discomfort [Not Recovered/Not Resolved]
  - Abdominal pain [Not Recovered/Not Resolved]
  - Abdominal pain upper [Not Recovered/Not Resolved]
  - Adjustment disorder with depressed mood [Not Recovered/Not Resolved]
  - Adverse drug reaction [Not Recovered/Not Resolved]
  - Adverse event [Not Recovered/Not Resolved]
  - Alopecia [Not Recovered/Not Resolved]
  - Amnesia [Not Recovered/Not Resolved]
